FAERS Safety Report 22860522 (Version 2)
Quarter: 2025Q2

REPORT INFORMATION
  Report Type: Spontaneous
  Country: GB (occurrence: GB)
  Receive Date: 20230824
  Receipt Date: 20250409
  Transmission Date: 20250716
  Serious: Yes (Other)
  Sender: ROCHE
  Company Number: GB-ROCHE-3407996

PATIENT
  Sex: Male

DRUGS (2)
  1. AVASTIN [Suspect]
     Active Substance: BEVACIZUMAB
     Indication: Product used for unknown indication
     Route: 065
     Dates: start: 2018
  2. AVASTIN [Suspect]
     Active Substance: BEVACIZUMAB
     Route: 065
     Dates: start: 2019

REACTIONS (6)
  - Macular oedema [Unknown]
  - Retinal ischaemia [Unknown]
  - Off label use [Unknown]
  - Haemorrhage [Unknown]
  - Photophobia [Unknown]
  - Gastric haemorrhage [Unknown]
